FAERS Safety Report 5606857-0 (Version None)
Quarter: 2008Q1

REPORT INFORMATION
  Report Type: 
  Country: None (occurrence: None)
  Receive Date: 20080129
  Receipt Date: 20080104
  Transmission Date: 20080703
  Serious: No
  Sender: FDA-Public Use
  Company Number: US-BOEHRINGER INGELHEIM GMBH, GERMANY-2007-BP-25310BP

PATIENT
  Sex: Male

DRUGS (2)
  1. ZANTAC 150 [Suspect]
     Indication: DYSPEPSIA
     Route: 048
     Dates: start: 20071101, end: 20071101
  2. ZANTAC 150 [Suspect]

REACTIONS (5)
  - EXPIRED DRUG ADMINISTERED [None]
  - ILL-DEFINED DISORDER [None]
  - NAUSEA [None]
  - PYREXIA [None]
  - VOMITING [None]
